FAERS Safety Report 4682524-5 (Version None)
Quarter: 2005Q2

REPORT INFORMATION
  Report Type: 
  Country: None (occurrence: None)
  Receive Date: 20050606
  Receipt Date: 20050310
  Transmission Date: 20051028
  Serious: Yes (Hospitalization, Other)
  Sender: FDA-Public Use
  Company Number: US-MERCK-0503USA02023

PATIENT
  Age: 74 Year
  Sex: Male
  Weight: 105 kg

DRUGS (6)
  1. VIOXX [Suspect]
     Indication: ARTHRITIS
     Route: 048
     Dates: start: 20030522, end: 20040930
  2. LIPITOR [Concomitant]
     Route: 065
     Dates: start: 19960101
  3. SYNTHROID [Concomitant]
     Route: 065
  4. COUMADIN [Concomitant]
     Route: 065
     Dates: start: 19930101, end: 20040801
  5. TENORMIN [Concomitant]
     Route: 065
     Dates: start: 19930101
  6. CELEBREX [Concomitant]
     Route: 065
     Dates: start: 20040801

REACTIONS (10)
  - ANGINA PECTORIS [None]
  - ATHEROSCLEROSIS [None]
  - CARDIAC DISORDER [None]
  - CARDIAC ENZYMES INCREASED [None]
  - CEREBROVASCULAR ACCIDENT [None]
  - CORONARY ARTERY DISEASE [None]
  - DYSPNOEA [None]
  - EMOTIONAL DISTRESS [None]
  - MYOCARDIAL INFARCTION [None]
  - THROMBOSIS [None]
